FAERS Safety Report 9348092 (Version 1)
Quarter: 2013Q2

REPORT INFORMATION
  Report Type: Spontaneous
  Country: US (occurrence: US)
  Receive Date: 20130614
  Receipt Date: 20130614
  Transmission Date: 20140414
  Serious: No
  Sender: FDA-Public Use
  Company Number: US-009507513-1306USA006180

PATIENT
  Sex: Male

DRUGS (2)
  1. ISENTRESS [Suspect]
     Indication: PROPHYLAXIS AGAINST HIV INFECTION
     Dosage: 400 MG, UNK
     Route: 048
     Dates: start: 20130314, end: 20130612
  2. TRUVADA [Concomitant]

REACTIONS (2)
  - Rash papular [Unknown]
  - Rash pustular [Unknown]
